FAERS Safety Report 24789204 (Version 1)
Quarter: 2024Q4

REPORT INFORMATION
  Report Type: Spontaneous
  Country: GB (occurrence: GB)
  Receive Date: 20241230
  Receipt Date: 20241230
  Transmission Date: 20250115
  Serious: Yes (Hospitalization, Other)
  Sender: ADVANZ PHARMA
  Company Number: GB-MHRA-MIDB-bac68659-b99b-46b9-9a8b-c3ac391ae458

PATIENT

DRUGS (17)
  1. PREDNISOLONE [Suspect]
     Active Substance: PREDNISOLONE
     Dosage: 1 MG (1 MG TABLETS ON REDUCING DOSE )
  2. PREDNISOLONE [Suspect]
     Active Substance: PREDNISOLONE
     Dosage: 5 MG, QD (5 MG TABLETS REDUCING DOSE AS DIRECTED UNTIL RVIEW IN RHEMATOLOGY CLINIC, TAKE TWELVE TABL
  3. ROSUVASTATIN [Concomitant]
     Active Substance: ROSUVASTATIN
     Dosage: 5 MG, QD (ONE TO BE TAKEN EACH DAY)
  4. RANOLAZINE [Concomitant]
     Active Substance: RANOLAZINE
     Dosage: 375 MG, BID (ONE TO BE TAKEN TWICE A DAY)
  5. OMEPRAZOLE [Concomitant]
     Active Substance: OMEPRAZOLE
     Dosage: 20 MG, BID (ONE TO BE TAKEN TWICE A DAY )
  6. NYSTATIN [Concomitant]
     Active Substance: NYSTATIN
     Dosage: 1 ML, QID (100,000 UNITS/ML ORAL SUSPENSION 1 ML TO BE DROPPED INTO THE MOUTH FOUR TIMES A DAY)
  7. ACETAMINOPHEN [Concomitant]
     Active Substance: ACETAMINOPHEN
     Dosage: 1 G, PRN (1G QDS PRN 14/7- TAKES PRN)
  8. LANSOPRAZOLE [Concomitant]
     Active Substance: LANSOPRAZOLE
     Dosage: 30 MG, QD (ONE TO BE TAKEN EACH MORNING)
  9. MORPHINE [Concomitant]
     Active Substance: MORPHINE
     Dosage: 2.5 MG, Q4H (2.5MG EVERY 4 HOURS (6 HOURLY))
  10. GABAPENTIN [Concomitant]
     Active Substance: GABAPENTIN
     Dosage: 300 MG, TID (ONE TO BE TAKEN THREE TIMES A DAY)
  11. FEXOFENADINE [Concomitant]
     Active Substance: FEXOFENADINE HYDROCHLORIDE
     Dosage: 180 MG, BID (ONE TO BE TAKEN TWICE DAILY AS ADVISED BY DERMATOLOGY)
  12. CARBOCYSTEINE [Concomitant]
     Active Substance: CARBOCYSTEINE
     Dosage: 375 MG, TID (TWO TO BE TAKEN THREE TIMES A DAY)
  13. CITALOPRAM [Concomitant]
     Active Substance: CITALOPRAM
     Dosage: 20 MG, QD (ONE TO BE TAKEN DAILY)
  14. ASPIRIN [Concomitant]
     Active Substance: ASPIRIN
     Dosage: 75 MG, QD (ONE TO BE TAKEN EACH DAY)
  15. Adcal-D3 chewable tablets tutti frutti (ProStrakan Ltd) [Concomitant]
     Dosage: 1 DOSAGE FORM, BID (ONE TO BE TAKEN TWICE DAILY)
  16. ALENDRONIC ACID [Concomitant]
     Active Substance: ALENDRONIC ACID
     Dosage: 70 MG, WEEKLY (ONE TO BE TAKEN WEEKLY)
  17. NIFEDIPINE [Concomitant]
     Active Substance: NIFEDIPINE
     Dosage: 30 MG, QD (ONE TO BE TAKEN EACH DAY)

REACTIONS (1)
  - Orthostatic hypotension [Unknown]
